FAERS Safety Report 13641351 (Version 2)
Quarter: 2017Q2

REPORT INFORMATION
  Report Type: Spontaneous
  Country: DE (occurrence: DE)
  Receive Date: 20170612
  Receipt Date: 20170630
  Transmission Date: 20170830
  Serious: Yes (Other)
  Sender: FDA-Public Use
  Company Number: DE-TORRENT-00006588

PATIENT
  Age: 66 Year
  Sex: Male

DRUGS (15)
  1. ZIPRASIDONE HYDROCHLORIDE. [Concomitant]
     Active Substance: ZIPRASIDONE HYDROCHLORIDE
  2. OLANZAPINE. [Suspect]
     Active Substance: OLANZAPINE
  3. ENALAPRIL [Concomitant]
     Active Substance: ENALAPRIL
  4. QUILONUM RETARD [Suspect]
     Active Substance: LITHIUM CARBONATE
  5. ROHYPNOL [Suspect]
     Active Substance: FLUNITRAZEPAM
  6. PANTOPRAZOLE [Concomitant]
     Active Substance: PANTOPRAZOLE
  7. TAMSULOSIN [Concomitant]
     Active Substance: TAMSULOSIN
  8. ZOPICLONE [Concomitant]
     Active Substance: ZOPICLONE
  9. HALOPERIDOL. [Concomitant]
     Active Substance: HALOPERIDOL
  10. MOVICOL [Concomitant]
     Active Substance: POLYETHYLENE GLYCOL 3350\POTASSIUM CHLORIDE\SODIUM BICARBONATE\SODIUM CHLORIDE
  11. GLIMEPIRIDE. [Concomitant]
     Active Substance: GLIMEPIRIDE
  12. METFORMIN [Concomitant]
     Active Substance: METFORMIN HYDROCHLORIDE
  13. COLECALCIFEROL [Concomitant]
     Active Substance: CHOLECALCIFEROL
  14. QUETIAPINE FUMARATE. [Concomitant]
     Active Substance: QUETIAPINE FUMARATE
  15. PIPAMPERONE [Concomitant]
     Active Substance: PIPAMPERONE

REACTIONS (5)
  - Memory impairment [Recovered/Resolved]
  - Anal incontinence [Recovered/Resolved]
  - Disturbance in attention [Recovered/Resolved]
  - Logorrhoea [Recovered/Resolved]
  - Urinary incontinence [Recovered/Resolved]

NARRATIVE: CASE EVENT DATE: 20160805
